FAERS Safety Report 8758863 (Version 1)
Quarter: 2012Q4

REPORT INFORMATION
  Report Type: 
  Country: BR (occurrence: BR)
  Receive Date: 20120829
  Receipt Date: 20120829
  Transmission Date: 20130627
  Serious: Yes (Other)
  Sender: FDA-Public Use
  Company Number: PHHY2012BR074126

PATIENT
  Sex: Female

DRUGS (4)
  1. DIOVAN HCT [Suspect]
     Indication: HYPERTENSION
     Dosage: 1 tablet (320/25 mg), daily
     Route: 048
  2. DIGOXIN [Concomitant]
     Indication: CARDIAC DISORDER
     Dosage: 0.5 DF, daily
  3. MAREVAN [Concomitant]
     Indication: CARDIAC DISORDER
     Dosage: 0.5 DF, QOD
  4. MAREVAN [Concomitant]
     Dosage: 0.25, QOD

REACTIONS (4)
  - Pneumonia [Recovered/Resolved]
  - Oropharyngeal pain [Recovering/Resolving]
  - Cough [Recovering/Resolving]
  - Headache [Recovering/Resolving]
